FAERS Safety Report 7677262-0 (Version None)
Quarter: 2011Q3

REPORT INFORMATION
  Report Type: 
  Country: None (occurrence: None)
  Receive Date: 20110808
  Receipt Date: 20110803
  Transmission Date: 20111222
  Serious: Yes (Death, Hospitalization)
  Sender: FDA-Public Use
  Company Number: 20119918

PATIENT
  Sex: Male

DRUGS (1)
  1. LIORESAL [Suspect]
     Indication: MUSCLE SPASTICITY
     Dosage: INTRATHECAL
     Route: 037

REACTIONS (8)
  - MUSCLE SPASMS [None]
  - COMA [None]
  - DEVICE BATTERY ISSUE [None]
  - OVERDOSE [None]
  - MENINGITIS [None]
  - DEVICE BREAKAGE [None]
  - CONDITION AGGRAVATED [None]
  - BODY TEMPERATURE INCREASED [None]
